FAERS Safety Report 14608348 (Version 4)
Quarter: 2018Q2

REPORT INFORMATION
  Report Type: Other
  Country: CA (occurrence: CA)
  Receive Date: 20180307
  Receipt Date: 20180422
  Transmission Date: 20180711
  Serious: Yes (Other)
  Sender: FDA-Public Use
  Company Number: CA-APOTEX-2018AP007182

PATIENT
  Age: 87 Year
  Sex: Female

DRUGS (1)
  1. AZITHROMYCIN ANHYDROUS. [Suspect]
     Active Substance: AZITHROMYCIN ANHYDROUS
     Indication: PNEUMONIA
     Dosage: 250 MG, BID
     Route: 065

REACTIONS (3)
  - Asthenia [Unknown]
  - Fatigue [Unknown]
  - Drug ineffective [Unknown]
